FAERS Safety Report 16761263 (Version 1)
Quarter: 2019Q3

REPORT INFORMATION
  Report Type: Spontaneous
  Country: US (occurrence: US)
  Receive Date: 20190830
  Receipt Date: 20190830
  Transmission Date: 20191005
  Serious: No
  Sender: FDA-Public Use
  Company Number: US-TOLMAR, INC.-TOLG20192377

PATIENT
  Sex: Female

DRUGS (1)
  1. METRONIDAZOLE. [Suspect]
     Active Substance: METRONIDAZOLE
     Indication: PRODUCT USED FOR UNKNOWN INDICATION
     Dosage: UNKNOWN
     Route: 067

REACTIONS (10)
  - Dysuria [Unknown]
  - Influenza like illness [Unknown]
  - Abdominal pain upper [Unknown]
  - Vulvovaginal discomfort [Unknown]
  - Insomnia [Unknown]
  - Vaginal haemorrhage [Unknown]
  - Asthenia [Unknown]
  - Headache [Unknown]
  - Muscular weakness [Unknown]
  - Paraesthesia [Unknown]
